FAERS Safety Report 22248811 (Version 3)
Quarter: 2023Q2

REPORT INFORMATION
  Report Type: Spontaneous
  Country: US (occurrence: US)
  Receive Date: 20230425
  Receipt Date: 20230605
  Transmission Date: 20230721
  Serious: Yes (Other)
  Sender: FDA-Public Use
  Company Number: US-JNJFOC-20230445230

PATIENT
  Sex: Male

DRUGS (1)
  1. OPSUMIT [Suspect]
     Active Substance: MACITENTAN
     Indication: Product used for unknown indication
     Route: 048
     Dates: start: 20230411

REACTIONS (8)
  - Cardiac operation [Unknown]
  - Pulmonary hypertension [Unknown]
  - Nerve injury [Unknown]
  - Vomiting [Unknown]
  - Dyspnoea [Unknown]
  - Fluid retention [Unknown]
  - Rash [Recovered/Resolved]
  - Fatigue [Unknown]
